FAERS Safety Report 8221102-8 (Version None)
Quarter: 2012Q1

REPORT INFORMATION
  Report Type: 
  Country: None (occurrence: None)
  Receive Date: 20120320
  Receipt Date: 20120313
  Transmission Date: 20120608
  Serious: Yes (Hospitalization, Other)
  Sender: FDA-Public Use
  Company Number: US-ROXANE LABORATORIES, INC.-2012-RO-00852RO

PATIENT
  Age: 38 Year
  Sex: Male

DRUGS (6)
  1. DIAZEPAM [Suspect]
     Indication: NECK PAIN
  2. METHADONE HCL [Suspect]
     Indication: BACK PAIN
  3. DIAZEPAM [Suspect]
     Indication: BACK PAIN
  4. METHADONE HCL [Suspect]
     Indication: NECK PAIN
  5. METHYLPHENIDATE [Suspect]
     Indication: TOXIC ENCEPHALOPATHY
  6. AMANTADINE HCL [Suspect]
     Indication: TOXIC ENCEPHALOPATHY
     Dosage: 200 MG

REACTIONS (8)
  - UNRESPONSIVE TO STIMULI [None]
  - COMA [None]
  - HALLUCINATION, VISUAL [None]
  - RENAL FAILURE ACUTE [None]
  - HEPATIC ENZYME INCREASED [None]
  - TOXIC ENCEPHALOPATHY [None]
  - RHABDOMYOLYSIS [None]
  - BLOOD PRESSURE DECREASED [None]
